FAERS Safety Report 17466849 (Version 1)
Quarter: 2020Q1

REPORT INFORMATION
  Report Type: Spontaneous
  Country: US (occurrence: US)
  Receive Date: 20200214
  Receipt Date: 20200214
  Transmission Date: 20200409
  Serious: No
  Sender: FDA-Public Use
  Company Number: None

PATIENT
  Age: 51 Year
  Sex: Female

DRUGS (13)
  1. OMEPRAZOLE. [Concomitant]
     Active Substance: OMEPRAZOLE
  2. URSODIOL. [Concomitant]
     Active Substance: URSODIOL
  3. OXYCODONE [Concomitant]
     Active Substance: OXYCODONE
  4. FAMOTIDINE. [Concomitant]
     Active Substance: FAMOTIDINE
  5. LACTULOSE. [Concomitant]
     Active Substance: LACTULOSE
  6. TRAZODONE [Concomitant]
     Active Substance: TRAZODONE HYDROCHLORIDE
  7. PHENAZOPYRID [Concomitant]
  8. DOK [Concomitant]
     Active Substance: DOCUSATE SODIUM
  9. GABAPENTIN. [Concomitant]
     Active Substance: GABAPENTIN
  10. OCALIVA [Suspect]
     Active Substance: OBETICHOLIC ACID
     Indication: PRIMARY BILIARY CHOLANGITIS
     Route: 048
     Dates: start: 20191023
  11. CLYCLOBENZAPR [Concomitant]
  12. HYDROXYZ HCL [Concomitant]
     Active Substance: HYDROXYZINE HYDROCHLORIDE
  13. NITROFURANTN [Concomitant]
     Active Substance: NITROFURANTOIN

REACTIONS (4)
  - Memory impairment [None]
  - Urinary tract infection [None]
  - Fatigue [None]
  - Pruritus [None]
